FAERS Safety Report 18232673 (Version 2)
Quarter: 2020Q3

REPORT INFORMATION
  Report Type: Spontaneous
  Country: FR (occurrence: FR)
  Receive Date: 20200904
  Receipt Date: 20200930
  Transmission Date: 20201103
  Serious: Yes (Hospitalization)
  Sender: FDA-Public Use
  Company Number: FR-TEVA-2020-FR-1820910

PATIENT
  Age: 51 Year
  Sex: Female

DRUGS (24)
  1. METHOTREXATE. [Suspect]
     Active Substance: METHOTREXATE
     Indication: ACUTE MYELOID LEUKAEMIA
     Dosage: UNIT DOSE : 15 MILLIGRAM
     Route: 037
     Dates: start: 20200326
  2. CHLORHYDRATE D^IDARUBICINE [Suspect]
     Active Substance: IDARUBICIN
     Indication: ACUTE MYELOID LEUKAEMIA
     Dosage: 9 MG / M  FROM D1 TO D5, UNIT DOSE : 9 MG/M2
     Route: 042
     Dates: start: 20200326, end: 20200330
  3. FLAGYL [Concomitant]
     Active Substance: METRONIDAZOLE\METRONIDAZOLE HYDROCHLORIDE
     Route: 042
     Dates: start: 20200401, end: 20200407
  4. LINEZOLIDE [Concomitant]
     Active Substance: LINEZOLID
     Dates: start: 20200409, end: 20200412
  5. MEROPENEM ANHYDRE [Concomitant]
     Active Substance: MEROPENEM
     Dates: start: 20200423, end: 20200430
  6. AMOXICILLINE [Concomitant]
     Active Substance: AMOXICILLIN
     Dates: start: 20200418, end: 20200423
  7. X PREP [Concomitant]
     Dates: start: 20200408, end: 20200409
  8. GENTAMICINE [Concomitant]
     Active Substance: GENTAMICIN
     Dates: start: 20200412, end: 20200413
  9. FLUOROURACILE [Concomitant]
     Active Substance: FLUOROURACIL
     Route: 042
     Dates: start: 201612, end: 201702
  10. CHLORHYDRATE D^EPIRUBICINE [Concomitant]
     Route: 042
     Dates: start: 201612, end: 201702
  11. TAZOCILLINE [Concomitant]
     Active Substance: PIPERACILLIN SODIUM\TAZOBACTAM SODIUM
     Dates: start: 20200409, end: 20200418
  12. MIDOSTAURINE [Concomitant]
     Active Substance: MIDOSTAURIN
     Dates: start: 20200404, end: 20200413
  13. CYTARABINE. [Suspect]
     Active Substance: CYTARABINE
     Indication: ACUTE MYELOID LEUKAEMIA
     Dosage: 200 MG / M  FROM D1 TO D7
     Route: 042
     Dates: start: 20200326, end: 20200401
  14. TAZOCILLINE [Concomitant]
     Active Substance: PIPERACILLIN SODIUM\TAZOBACTAM SODIUM
     Route: 042
     Dates: start: 20200323, end: 20200330
  15. PROSTIGMINE 0,5 MG/1 ML, SOLUTION INJECTABLE [Concomitant]
     Active Substance: NEOSTIGMINE METHYLSULFATE
     Dates: start: 20200425
  16. CYCLOPHOSPHAMIDE. [Concomitant]
     Active Substance: CYCLOPHOSPHAMIDE
     Route: 042
     Dates: start: 201612, end: 201702
  17. PACLITAXEL. [Concomitant]
     Active Substance: PACLITAXEL
     Route: 042
     Dates: start: 2017, end: 2017
  18. CHLORHYDRATE DE NEFOPAM [Concomitant]
     Active Substance: NEFOPAM HYDROCHLORIDE
     Dates: start: 20200404, end: 20200409
  19. CYTARABINE. [Concomitant]
     Active Substance: CYTARABINE
     Indication: ACUTE MYELOID LEUKAEMIA
     Dosage: UNIT DOSE : 40 MILLIGRAM
     Route: 037
     Dates: start: 20200421
  20. DEPO?MEDROL [Concomitant]
     Active Substance: METHYLPREDNISOLONE ACETATE
     Indication: ACUTE MYELOID LEUKAEMIA
     Dosage: UNIT DOSE : 40 MILLIGRAM
     Route: 037
     Dates: start: 20200421
  21. CEFEPIME [Concomitant]
     Active Substance: CEFEPIME HYDROCHLORIDE
     Route: 042
     Dates: start: 20200401, end: 20200407
  22. MORPHINE [Concomitant]
     Active Substance: MORPHINE
     Dates: start: 20200409
  23. VANCOMYCINE [Concomitant]
     Active Substance: VANCOMYCIN
     Dates: start: 20200415, end: 20200418
  24. HERCEPTIN [Concomitant]
     Active Substance: TRASTUZUMAB
     Route: 042
     Dates: start: 2017, end: 2018

REACTIONS (1)
  - Autonomic nervous system imbalance [Not Recovered/Not Resolved]

NARRATIVE: CASE EVENT DATE: 20200406
